FAERS Safety Report 22624156 (Version 6)
Quarter: 2024Q3

REPORT INFORMATION
  Report Type: Spontaneous
  Country: FR (occurrence: FR)
  Receive Date: 20230621
  Receipt Date: 20240814
  Transmission Date: 20241017
  Serious: Yes (Hospitalization, Other)
  Sender: MYLAN
  Company Number: FR-ROCHE-3358883

PATIENT
  Age: 2 Year
  Sex: Female

DRUGS (30)
  1. MYCOPHENOLATE MOFETIL [Suspect]
     Active Substance: MYCOPHENOLATE MOFETIL
     Indication: Prophylaxis against transplant rejection
     Dosage: UNK
     Route: 065
  2. MYCOPHENOLATE MOFETIL [Suspect]
     Active Substance: MYCOPHENOLATE MOFETIL
     Indication: Nephrotic syndrome
  3. METHYLPREDNISOLONE [Suspect]
     Active Substance: METHYLPREDNISOLONE
     Indication: Prophylaxis against transplant rejection
     Dosage: 1 G/1.73 M2 AT DAYS 6, 8 AND 10
     Route: 065
  4. METHYLPREDNISOLONE [Suspect]
     Active Substance: METHYLPREDNISOLONE
     Indication: Nephrotic syndrome
     Dosage: UNK RECEIVED THREE PULSES ON DAY 6, 7 AND 8 OF TRANSPLANT
     Route: 065
  5. TACROLIMUS [Suspect]
     Active Substance: TACROLIMUS
     Indication: Prophylaxis against transplant rejection
     Dosage: UNK, 10-15 NG/ML
     Route: 048
  6. TACROLIMUS [Suspect]
     Active Substance: TACROLIMUS
     Indication: Immunosuppressant drug therapy
     Dosage: UNK, DOSE WAS INCREASED TO TROUGH LEVELS OF UP TO 15NG/ML
     Route: 065
  7. TACROLIMUS [Suspect]
     Active Substance: TACROLIMUS
     Indication: Nephrotic syndrome
     Dosage: UNK AT THE TIME OF INDUCTION
     Route: 065
  8. TACROLIMUS [Suspect]
     Active Substance: TACROLIMUS
     Dosage: UNK ADMINISTERED WITH A TROUGH LEVELS OF UP TO 10NG/ML
     Route: 065
  9. VALGANCICLOVIR [Suspect]
     Active Substance: VALGANCICLOVIR
     Indication: Antiviral prophylaxis
     Dosage: UNK
     Route: 065
  10. VALGANCICLOVIR [Suspect]
     Active Substance: VALGANCICLOVIR
     Dosage: UNK
     Route: 065
  11. RITUXIMAB [Suspect]
     Active Substance: RITUXIMAB
     Indication: Immunosuppressant drug therapy
     Dosage: UNK
     Route: 065
  12. DARATUMUMAB [Suspect]
     Active Substance: DARATUMUMAB
     Indication: Nephrotic syndrome
     Dosage: Q28D (Q4WEEKS)AT 1 G/1.73 M2 FROM DAY 65
     Route: 065
  13. DARATUMUMAB [Suspect]
     Active Substance: DARATUMUMAB
     Indication: Prophylaxis against transplant rejection
     Dosage: AT DAY 150, FIFTH INFUSION
     Route: 065
  14. DARATUMUMAB [Suspect]
     Active Substance: DARATUMUMAB
     Dosage: AT DAY 280, 6TH INFUSION
     Route: 065
  15. DARATUMUMAB [Suspect]
     Active Substance: DARATUMUMAB
     Dosage: UNK AS A MAINTENANCE TREATMENT SHE FURTHER RECEIVED RE-INJECTIONS
     Route: 065
  16. DARATUMUMAB [Suspect]
     Active Substance: DARATUMUMAB
     Dosage: 1 GRAM, QW
     Route: 065
  17. THYMOGLOBULIN [Suspect]
     Active Substance: LAPINE T-LYMPHOCYTE IMMUNE GLOBULIN
     Indication: Prophylaxis against transplant rejection
     Dosage: UNK
     Route: 065
  18. THYMOGLOBULIN [Suspect]
     Active Substance: LAPINE T-LYMPHOCYTE IMMUNE GLOBULIN
     Indication: Nephrotic syndrome
  19. PENTAMIDINE [Suspect]
     Active Substance: PENTAMIDINE
     Indication: Antifungal prophylaxis
     Dosage: UNK
     Route: 055
  20. PENTAMIDINE [Suspect]
     Active Substance: PENTAMIDINE
     Indication: Pneumocystis jirovecii pneumonia
  21. PENTAMIDINE [Suspect]
     Active Substance: PENTAMIDINE
     Indication: Prophylaxis
  22. CYCLOSPORINE [Suspect]
     Active Substance: CYCLOSPORINE
     Indication: Immunosuppressant drug therapy
     Dosage: UNK
     Route: 042
  23. CYCLOSPORINE [Suspect]
     Active Substance: CYCLOSPORINE
     Indication: Nephrotic syndrome
  24. OBINUTUZUMAB [Suspect]
     Active Substance: OBINUTUZUMAB
     Indication: Nephrotic syndrome
     Dosage: QW (1 G/1.73 M2, 3/WEEK)
     Route: 042
  25. OBINUTUZUMAB [Suspect]
     Active Substance: OBINUTUZUMAB
     Dosage: AT DAY 150, FIFTH INFUSION
     Route: 065
  26. OBINUTUZUMAB [Suspect]
     Active Substance: OBINUTUZUMAB
     Dosage: AT DAY 280, 6TH INFUSION
     Route: 065
  27. OBINUTUZUMAB [Suspect]
     Active Substance: OBINUTUZUMAB
     Dosage: AS A MAINTENANCE TREATMENT SHE FURTHER RECEIVED RE-INJECTIONS
     Route: 065
  28. COTRIMOXAZOLE [Concomitant]
     Active Substance: SULFAMETHOXAZOLE\TRIMETHOPRIM
     Indication: Pneumocystis jirovecii pneumonia
     Dosage: UNK
     Route: 065
  29. COTRIMOXAZOLE [Concomitant]
     Active Substance: SULFAMETHOXAZOLE\TRIMETHOPRIM
     Indication: Prophylaxis
     Dosage: UNK
     Route: 065
  30. AZATHIOPRINE [Concomitant]
     Active Substance: AZATHIOPRINE
     Indication: Immunosuppression
     Dosage: UNK
     Route: 065

REACTIONS (13)
  - Cytomegalovirus infection reactivation [Recovered/Resolved]
  - Neutropenia [Unknown]
  - Pneumocystis jirovecii pneumonia [Recovering/Resolving]
  - COVID-19 [Unknown]
  - Haematotoxicity [Unknown]
  - Hypogammaglobulinaemia [Recovered/Resolved]
  - Hepatitis B [Unknown]
  - Drug ineffective [Unknown]
  - Cough [Unknown]
  - Varicella [Unknown]
  - Measles [Unknown]
  - Intentional product use issue [Unknown]
  - Drug ineffective for unapproved indication [Unknown]
